FAERS Safety Report 5056790-0 (Version None)
Quarter: 2006Q2

REPORT INFORMATION
  Report Type: 
  Country: None (occurrence: None)
  Receive Date: 20060616
  Receipt Date: 20060515
  Transmission Date: 20061013
  Serious: No
  Sender: FDA-Public Use
  Company Number: 2006US001054

PATIENT
  Age: 42 Year
  Sex: Female

DRUGS (7)
  1. VESICARE [Suspect]
     Indication: URINARY INCONTINENCE
     Dosage: SEE IMAGE
     Route: 048
     Dates: start: 20060201
  2. VESICARE [Suspect]
     Indication: URINARY INCONTINENCE
     Dosage: SEE IMAGE
     Route: 048
     Dates: start: 20060301
  3. AVANDIA [Concomitant]
  4. CYMBALTA [Concomitant]
  5. CLONAZEPAM [Concomitant]
  6. MORPHINE [Concomitant]
  7. OXYBUTIN (OXYBUTYNIN HYDROCHLORIDE) [Concomitant]

REACTIONS (1)
  - DRUG INEFFECTIVE [None]
